FAERS Safety Report 15616915 (Version 5)
Quarter: 2019Q3

REPORT INFORMATION
  Report Type: Report from Study
  Country: BR (occurrence: BR)
  Receive Date: 20181114
  Receipt Date: 20190712
  Transmission Date: 20191004
  Serious: Yes (Life-Threatening, Hospitalization, Other)
  Sender: FDA-Public Use
  Company Number: BR-BRISTOL-MYERS SQUIBB COMPANY-BMS-2018-105074

PATIENT
  Age: 66 Year
  Sex: Female

DRUGS (1)
  1. ABATACEPT [Suspect]
     Active Substance: ABATACEPT
     Indication: RHEUMATOID ARTHRITIS
     Dosage: 750 MG, QMO
     Route: 042

REACTIONS (16)
  - Headache [Recovered/Resolved]
  - Anxiety [Unknown]
  - Pneumonia [Recovered/Resolved]
  - Cardiac disorder [Recovered/Resolved]
  - Asthenia [Unknown]
  - Diarrhoea [Unknown]
  - Oral candidiasis [Unknown]
  - Cough [Recovered/Resolved]
  - Weight decreased [Unknown]
  - Arthropathy [Unknown]
  - Dysphonia [Unknown]
  - Oesophageal disorder [Recovered/Resolved]
  - Ear pain [Recovered/Resolved]
  - Back pain [Unknown]
  - Aphasia [Unknown]
  - Cartilage injury [Unknown]

NARRATIVE: CASE EVENT DATE: 201808
